FAERS Safety Report 6330789-6 (Version None)
Quarter: 2009Q3

REPORT INFORMATION
  Report Type: 
  Country: None (occurrence: None)
  Receive Date: 20090827
  Receipt Date: 20090817
  Transmission Date: 20100115
  Serious: Yes (Hospitalization, Other)
  Sender: FDA-Public Use
  Company Number: PHHY2009NZ34493

PATIENT
  Sex: Male

DRUGS (3)
  1. CLOZARIL [Suspect]
     Dosage: 400 MG NOCTE
  2. CLOZARIL [Suspect]
     Dosage: 150 MG NOCTE
  3. CLOZARIL [Suspect]
     Dosage: 400 MG AT NIGHT

REACTIONS (6)
  - BRAIN INJURY [None]
  - DELIRIUM [None]
  - ENCEPHALOPATHY [None]
  - FALL [None]
  - HYPOGLYCAEMIA [None]
  - TREATMENT NONCOMPLIANCE [None]
